FAERS Safety Report 13941339 (Version 1)
Quarter: 2017Q3

REPORT INFORMATION
  Report Type: Other
  Country: ES (occurrence: ES)
  Receive Date: 20170906
  Receipt Date: 20170906
  Transmission Date: 20171127
  Serious: Yes (Life-Threatening, Hospitalization)
  Sender: FDA-Public Use
  Company Number: ES-VALIDUS PHARMACEUTICALS LLC-ES-2017VAL001317

PATIENT
  Age: 84 Year
  Sex: Male

DRUGS (2)
  1. ROCALTROL [Suspect]
     Active Substance: CALCITRIOL
     Indication: VITAMIN D DEFICIENCY
     Dosage: 0.5 ?G, UNK
     Route: 048
     Dates: start: 20161222, end: 20170629
  2. ROCALTROL [Suspect]
     Active Substance: CALCITRIOL
     Dosage: 1 ?G, UNK
     Route: 048
     Dates: start: 20170630, end: 20170811

REACTIONS (2)
  - Hypercalcaemia [Recovering/Resolving]
  - Acute kidney injury [Unknown]

NARRATIVE: CASE EVENT DATE: 20170714
